FAERS Safety Report 5695702-3 (Version None)
Quarter: 2008Q2

REPORT INFORMATION
  Report Type: 
  Country: None (occurrence: None)
  Receive Date: 20080407
  Receipt Date: 20080325
  Transmission Date: 20081010
  Serious: Yes (Death, Congenital Anomaly)
  Sender: FDA-Public Use
  Company Number: GB-ELI_LILLY_AND_COMPANY-GB200803005834

PATIENT

DRUGS (2)
  1. ZYPREXA [Suspect]
     Indication: BORDERLINE PERSONALITY DISORDER
     Dosage: 2.5 MG, UNK
     Route: 064
     Dates: start: 20070401, end: 20070401
  2. ZYPREXA [Suspect]
     Dosage: 5 MG, UNK
     Route: 064
     Dates: start: 20070401

REACTIONS (2)
  - BONE TUBERCULOSIS [None]
  - DRUG EXPOSURE DURING PREGNANCY [None]
